FAERS Safety Report 16834205 (Version 3)
Quarter: 2019Q4

REPORT INFORMATION
  Report Type: Spontaneous
  Country: JP (occurrence: JP)
  Receive Date: 20190920
  Receipt Date: 20191112
  Transmission Date: 20200122
  Serious: Yes (Death, Other)
  Sender: FDA-Public Use
  Company Number: JP-AMGEN-JPNSP2019152537

PATIENT
  Age: 87 Year
  Sex: Female
  Weight: 41 kg

DRUGS (3)
  1. WARFARIN [WARFARIN POTASSIUM] [Suspect]
     Active Substance: WARFARIN POTASSIUM
     Indication: DEEP VEIN THROMBOSIS
     Dosage: UNK
     Route: 065
     Dates: start: 201707
  2. EVENITY [Suspect]
     Active Substance: ROMOSOZUMAB-AQQG
     Indication: OSTEOPOROSIS
     Dosage: 210 MILLIGRAM
     Route: 058
     Dates: start: 20190703
  3. AZOSEMIDE [Concomitant]
     Active Substance: AZOSEMIDE
     Indication: OEDEMA
     Dosage: UNK

REACTIONS (1)
  - Cerebral haemorrhage [Fatal]

NARRATIVE: CASE EVENT DATE: 20190713
